FAERS Safety Report 6986503-4 (Version None)
Quarter: 2010Q3

REPORT INFORMATION
  Report Type: 
  Country: None (occurrence: None)
  Receive Date: 20100915
  Receipt Date: 20090710
  Transmission Date: 20110219
  Serious: No
  Sender: FDA-Public Use
  Company Number: US-WYE-H10116409

PATIENT
  Sex: Female
  Weight: 47.67 kg

DRUGS (3)
  1. PRISTIQ [Suspect]
     Indication: NERVOUSNESS
     Route: 048
     Dates: start: 20090703
  2. ACTONEL [Concomitant]
  3. VITAMINS [Concomitant]

REACTIONS (3)
  - CONFUSIONAL STATE [None]
  - DIZZINESS [None]
  - SOMNOLENCE [None]
